FAERS Safety Report 13670687 (Version 1)
Quarter: 2017Q2

REPORT INFORMATION
  Report Type: Report from Study
  Country: DE (occurrence: DE)
  Receive Date: 20170620
  Receipt Date: 20170620
  Transmission Date: 20170830
  Serious: Yes (Hospitalization, Other)
  Sender: FDA-Public Use
  Company Number: DE-BAYER-2017-112939

PATIENT
  Age: 67 Year
  Sex: Female

DRUGS (7)
  1. L-THYROXIN [Concomitant]
     Active Substance: LEVOTHYROXINE SODIUM
  2. METOPROLOL. [Concomitant]
     Active Substance: METOPROLOL
  3. INDAPAMID [Concomitant]
     Active Substance: INDAPAMIDE
  4. CANDESARTAN. [Concomitant]
     Active Substance: CANDESARTAN
  5. BETAFERON [Suspect]
     Active Substance: INTERFERON BETA-1B
     Indication: MULTIPLE SCLEROSIS
     Dosage: 250 ?G, QOD
     Route: 058
     Dates: start: 20140601
  6. PRAMIPEXOLE. [Concomitant]
     Active Substance: PRAMIPEXOLE
  7. HCT [Concomitant]
     Active Substance: HYDROCHLOROTHIAZIDE

REACTIONS (10)
  - Herpes dermatitis [None]
  - Nocturia [None]
  - Bone pain [Not Recovered/Not Resolved]
  - Initial insomnia [None]
  - Spinal pain [Not Recovered/Not Resolved]
  - Sleep disorder [None]
  - Hemiparesis [None]
  - Sinusitis noninfective [Recovered/Resolved]
  - Hypoaesthesia oral [None]
  - Injection site pain [Recovered/Resolved]

NARRATIVE: CASE EVENT DATE: 20170517
